FAERS Safety Report 22240754 (Version 1)
Quarter: 2023Q2

REPORT INFORMATION
  Report Type: Spontaneous
  Country: AU (occurrence: AU)
  Receive Date: 20230421
  Receipt Date: 20230421
  Transmission Date: 20230721
  Serious: Yes (Other)
  Sender: FDA-Public Use
  Company Number: AU-LUNDBECK-DKLU3060840

PATIENT
  Sex: Female

DRUGS (8)
  1. ESCITALOPRAM OXALATE [Suspect]
     Active Substance: ESCITALOPRAM OXALATE
     Indication: Cognitive disorder
  2. MIRTAZAPINE [Suspect]
     Active Substance: MIRTAZAPINE
     Indication: Cognitive disorder
     Route: 048
  3. RISPERIDONE [Suspect]
     Active Substance: RISPERIDONE
     Indication: Dysphagia
     Dosage: UNK
     Route: 048
  4. RISPERIDONE [Suspect]
     Active Substance: RISPERIDONE
     Dosage: UNK
  5. TETRABENAZINE [Suspect]
     Active Substance: TETRABENAZINE
     Indication: Chorea
     Dosage: UNK
     Route: 048
  6. TETRABENAZINE [Suspect]
     Active Substance: TETRABENAZINE
     Dosage: UNK
  7. VALPROIC ACID [Suspect]
     Active Substance: VALPROIC ACID
     Indication: Product used for unknown indication
     Dosage: UNK
     Route: 048
  8. VALPROIC ACID [Suspect]
     Active Substance: VALPROIC ACID
     Dosage: UNK
     Route: 042

REACTIONS (3)
  - Sedation [Unknown]
  - Drug ineffective [Unknown]
  - Product use in unapproved indication [Unknown]
